FAERS Safety Report 19242359 (Version 3)
Quarter: 2021Q2

REPORT INFORMATION
  Report Type: Report from Study
  Country: US (occurrence: US)
  Receive Date: 20210510
  Receipt Date: 20210618
  Transmission Date: 20210717
  Serious: Yes (Hospitalization)
  Sender: FDA-Public Use
  Company Number: US-SEATTLE GENETICS-2021SGN01682

PATIENT
  Sex: Female

DRUGS (2)
  1. TUCATINIB [Suspect]
     Active Substance: TUCATINIB
     Indication: BREAST CANCER FEMALE
     Dosage: UNK
  2. CAPECITABINE. [Suspect]
     Active Substance: CAPECITABINE
     Indication: PRODUCT USED FOR UNKNOWN INDICATION
     Dosage: 500 MG

REACTIONS (12)
  - Abdominal discomfort [Unknown]
  - Neoplasm progression [Unknown]
  - Hospitalisation [Unknown]
  - Stomatitis [Unknown]
  - Product dose omission issue [Unknown]
  - Malaise [Unknown]
  - Oral pain [Unknown]
  - Vomiting [Recovered/Resolved]
  - Nausea [Recovered/Resolved]
  - Salivary hypersecretion [Unknown]
  - Diarrhoea [Unknown]
  - Sleep disorder [Unknown]
